FAERS Safety Report 21303859 (Version 3)
Quarter: 2022Q4

REPORT INFORMATION
  Report Type: Report from Study
  Country: US (occurrence: None)
  Receive Date: 20220907
  Receipt Date: 20221006
  Transmission Date: 20230112
  Serious: Yes (Hospitalization)
  Sender: FDA-Public Use
  Company Number: US-Eisai Medical Research-EC-2022-122625

PATIENT
  Age: 46 Year
  Sex: Female

DRUGS (2)
  1. LENVIMA [Suspect]
     Active Substance: LENVATINIB
     Indication: Uterine cancer
     Route: 048
     Dates: start: 20220325, end: 202208
  2. KEYTRUDA [Concomitant]
     Active Substance: PEMBROLIZUMAB
     Indication: Product used for unknown indication
     Dosage: DOSE UNKNOWN
     Route: 041

REACTIONS (3)
  - Female genital tract fistula [Unknown]
  - Rectal ulcer [Unknown]
  - Rectal abscess [Unknown]

NARRATIVE: CASE EVENT DATE: 20220808
